FAERS Safety Report 21869108 (Version 1)
Quarter: 2023Q1

REPORT INFORMATION
  Report Type: Spontaneous
  Country: CN (occurrence: CN)
  Receive Date: 20230117
  Receipt Date: 20230117
  Transmission Date: 20230417
  Serious: Yes (Other)
  Sender: FDA-Public Use
  Company Number: CN-SUN PHARMACEUTICAL INDUSTRIES LTD-2023R1-373131

PATIENT
  Age: 51 Year
  Sex: Male

DRUGS (2)
  1. TEMOZOLOMIDE [Suspect]
     Active Substance: TEMOZOLOMIDE
     Indication: Brain stem glioma
     Dosage: 200 MILLIGRAM/SQ. METER, QD, D1-5
     Route: 065
  2. CATEQUENTINIB [Suspect]
     Active Substance: CATEQUENTINIB
     Indication: Brain stem glioma
     Dosage: 10 MILLIGRAM/SQ. METER, QD, D1-14
     Route: 048

REACTIONS (2)
  - Gene mutation [Unknown]
  - Hypertension [Unknown]
